FAERS Safety Report 17497227 (Version 1)
Quarter: 2020Q1

REPORT INFORMATION
  Report Type: Spontaneous
  Country: US (occurrence: US)
  Receive Date: 20200304
  Receipt Date: 20200304
  Transmission Date: 20200409
  Serious: Yes (Disabling)
  Sender: FDA-Public Use
  Company Number: None

PATIENT
  Age: 57 Year
  Sex: Male
  Weight: 85.5 kg

DRUGS (6)
  1. SINGULAIR [Suspect]
     Active Substance: MONTELUKAST SODIUM
     Indication: RHINITIS ALLERGIC
     Route: 048
     Dates: start: 20190819, end: 20200304
  2. LINSINOPRIL [Concomitant]
     Active Substance: LISINOPRIL
  3. PANTOPROZOLE [Concomitant]
     Active Substance: PANTOPRAZOLE SODIUM
  4. PRAVASTATIN. [Concomitant]
     Active Substance: PRAVASTATIN
  5. FLONASE [Concomitant]
     Active Substance: FLUTICASONE PROPIONATE
  6. MONTELUKAST [Concomitant]
     Active Substance: MONTELUKAST SODIUM

REACTIONS (11)
  - Agitation [None]
  - Disturbance in attention [None]
  - Abnormal dreams [None]
  - Suicidal ideation [None]
  - Anxiety [None]
  - Memory impairment [None]
  - Restlessness [None]
  - Nightmare [None]
  - Initial insomnia [None]
  - Irritability [None]
  - Obsessive-compulsive disorder [None]

NARRATIVE: CASE EVENT DATE: 20190826
